FAERS Safety Report 15715853 (Version 1)
Quarter: 2018Q4

REPORT INFORMATION
  Report Type: Spontaneous
  Country: AU (occurrence: AU)
  Receive Date: 20181212
  Receipt Date: 20181212
  Transmission Date: 20190205
  Serious: Yes (Other)
  Sender: FDA-Public Use
  Company Number: AU-009507513-1812AUS003925

PATIENT
  Age: 62 Year

DRUGS (6)
  1. POSACONAZOLE [Suspect]
     Active Substance: POSACONAZOLE
     Indication: BRONCHOPULMONARY ASPERGILLOSIS
     Dosage: UNK
     Route: 048
     Dates: end: 201801
  2. POSACONAZOLE [Suspect]
     Active Substance: POSACONAZOLE
     Indication: BRONCHOPULMONARY ASPERGILLOSIS
     Dosage: UNK
     Route: 048
     Dates: end: 201801
  3. POSACONAZOLE [Suspect]
     Active Substance: POSACONAZOLE
     Indication: PSEUDOMONAS INFECTION
  4. POSACONAZOLE [Suspect]
     Active Substance: POSACONAZOLE
     Indication: SCEDOSPORIUM INFECTION
     Dosage: UNK
     Route: 048
     Dates: start: 201807
  5. POSACONAZOLE [Suspect]
     Active Substance: POSACONAZOLE
     Indication: SCEDOSPORIUM INFECTION
     Dosage: UNK
     Route: 048
     Dates: start: 201807
  6. POSACONAZOLE [Suspect]
     Active Substance: POSACONAZOLE
     Indication: PSEUDOMONAS INFECTION

REACTIONS (4)
  - Pulmonary function test decreased [Not Recovered/Not Resolved]
  - Pseudomonas infection [Not Recovered/Not Resolved]
  - Bronchopulmonary aspergillosis [Not Recovered/Not Resolved]
  - Scedosporium infection [Not Recovered/Not Resolved]

NARRATIVE: CASE EVENT DATE: 201801
